FAERS Safety Report 5936046-1 (Version None)
Quarter: 2008Q4

REPORT INFORMATION
  Report Type: 
  Country: None (occurrence: None)
  Receive Date: 20081030
  Receipt Date: 20081023
  Transmission Date: 20090506
  Serious: Yes (Hospitalization)
  Sender: FDA-Public Use
  Company Number: FR-JNJFOC-20081005350

PATIENT
  Age: 42 Year
  Sex: Male
  Weight: 90 kg

DRUGS (3)
  1. HALDOL [Suspect]
     Route: 030
  2. HALDOL [Suspect]
     Indication: PSYCHOTIC DISORDER
     Route: 030
  3. LOXAPINE HCL [Concomitant]
     Indication: PSYCHOTIC DISORDER

REACTIONS (1)
  - INCORRECT DOSE ADMINISTERED [None]
